FAERS Safety Report 7893625-2 (Version None)
Quarter: 2011Q4

REPORT INFORMATION
  Report Type: 
  Country: None (occurrence: None)
  Receive Date: 20111104
  Receipt Date: 20111026
  Transmission Date: 20120403
  Serious: Yes (Death, Hospitalization)
  Sender: FDA-Public Use
  Company Number: JP-GLAXOSMITHKLINE-B0734671A

PATIENT
  Sex: Male
  Weight: 69 kg

DRUGS (22)
  1. ONEALFA [Concomitant]
     Indication: OSTEOPOROSIS
     Dosage: .5MCG PER DAY
     Route: 048
     Dates: start: 20110303, end: 20110608
  2. KINEDAK [Concomitant]
     Dosage: 150MG PER DAY
     Route: 048
     Dates: end: 20110608
  3. CORTRIL [Concomitant]
     Indication: ADRENAL INSUFFICIENCY
     Dosage: 20MG PER DAY
     Route: 048
     Dates: start: 20110308, end: 20110311
  4. NEORAL [Concomitant]
     Indication: IDIOPATHIC THROMBOCYTOPENIC PURPURA
     Dosage: 100MG PER DAY
     Route: 048
     Dates: start: 20110609, end: 20110615
  5. FUROSEMIDE [Concomitant]
     Indication: OEDEMA
     Dosage: 40MG PER DAY
     Route: 048
     Dates: start: 20110517, end: 20110520
  6. AMARYL [Concomitant]
     Indication: DIABETES MELLITUS
     Dosage: 1MG PER DAY
     Route: 048
     Dates: start: 20110223, end: 20110309
  7. PROMACTA [Suspect]
     Dosage: 25MG PER DAY
     Route: 048
     Dates: start: 20110509, end: 20110608
  8. METHYCOBAL [Concomitant]
     Dosage: 1500MCG PER DAY
     Route: 048
     Dates: end: 20110608
  9. DECADRON [Concomitant]
     Dosage: .5MG PER DAY
     Route: 048
     Dates: end: 20110429
  10. CLARITHROMYCIN [Concomitant]
     Indication: IDIOPATHIC THROMBOCYTOPENIC PURPURA
     Dosage: 400MG PER DAY
     Route: 048
     Dates: start: 20110401, end: 20110608
  11. MAGNESIUM OXIDE [Concomitant]
     Indication: CONSTIPATION
     Dosage: 1G PER DAY
     Route: 048
     Dates: start: 20110302, end: 20110504
  12. DEPAKENE [Concomitant]
     Indication: CONVULSION
     Dosage: 800MG PER DAY
     Route: 048
     Dates: start: 20110221, end: 20110608
  13. FLORINEF [Concomitant]
     Indication: ADRENAL INSUFFICIENCY
     Dosage: .1MG PER DAY
     Route: 048
     Dates: start: 20110312, end: 20110412
  14. DANAZOL [Concomitant]
     Indication: IDIOPATHIC THROMBOCYTOPENIC PURPURA
     Route: 048
  15. PROMACTA [Suspect]
     Indication: IDIOPATHIC THROMBOCYTOPENIC PURPURA
     Dosage: 12.5MG PER DAY
     Route: 048
     Dates: start: 20110425, end: 20110508
  16. PREDNISOLONE [Concomitant]
     Indication: IDIOPATHIC THROMBOCYTOPENIC PURPURA
     Dosage: 50MG PER DAY
     Route: 048
     Dates: start: 20110224, end: 20110304
  17. DECADRON [Concomitant]
     Indication: IDIOPATHIC THROMBOCYTOPENIC PURPURA
     Dosage: 10MG PER DAY
     Route: 048
     Dates: start: 20110305, end: 20110325
  18. ITRACONAZOLE [Concomitant]
     Indication: FUNGAL INFECTION
     Dosage: 100MG PER DAY
     Route: 048
     Dates: start: 20110304, end: 20110608
  19. DANAZOL [Concomitant]
     Dosage: 400MG PER DAY
     Route: 048
     Dates: start: 20110507, end: 20110608
  20. RITUXAN [Suspect]
     Indication: IDIOPATHIC THROMBOCYTOPENIC PURPURA
     Route: 042
  21. RITUXAN [Suspect]
     Dosage: 375MG PER DAY
     Route: 042
     Dates: start: 20110427, end: 20110427
  22. LANSOPRAZOLE [Concomitant]
     Indication: GASTRIC ULCER
     Dosage: 15MG PER DAY
     Route: 048
     Dates: start: 20110221, end: 20110608

REACTIONS (4)
  - BLOOD ALKALINE PHOSPHATASE INCREASED [None]
  - GAMMA-GLUTAMYLTRANSFERASE INCREASED [None]
  - ASTHENIA [None]
  - HYPOTENSION [None]
